FAERS Safety Report 8574541-X (Version None)
Quarter: 2012Q3

REPORT INFORMATION
  Report Type: 
  Country: None (occurrence: None)
  Receive Date: 20120806
  Receipt Date: 20120727
  Transmission Date: 20120928
  Serious: No
  Sender: FDA-Public Use
  Company Number: US-009507513-1207USA012226

PATIENT

DRUGS (14)
  1. FENOFIBRATE [Concomitant]
  2. RISPERIDONE [Concomitant]
  3. ACETAMINOPHEN [Concomitant]
  4. NEXIUM [Suspect]
     Dosage: UNK
     Route: 048
  5. ALPRAZOLAM [Concomitant]
  6. HYDROXYZINE [Concomitant]
  7. MIRTAZAPINE [Concomitant]
  8. VENLAFAXINE HYDROCHOLRIDE [Concomitant]
  9. SYMBICORT [Suspect]
     Dosage: 2 DF, BID
     Route: 055
  10. COLESEVELAM HYDROCHLORIDE [Concomitant]
  11. PRINIVIL [Suspect]
     Route: 048
  12. CRESTOR [Suspect]
     Route: 048
  13. LEVALBUTEROL HCL [Concomitant]
  14. HYDROCODONE BITARTRATE [Concomitant]

REACTIONS (7)
  - LIGAMENT SPRAIN [None]
  - PLEURISY [None]
  - MUSCLE SPASMS [None]
  - MUSCLE STRAIN [None]
  - BACK PAIN [None]
  - INSOMNIA [None]
  - COLONIC POLYP [None]
